FAERS Safety Report 5751115-7 (Version None)
Quarter: 2008Q2

REPORT INFORMATION
  Report Type: 
  Country: None (occurrence: None)
  Receive Date: 20080528
  Receipt Date: 20080515
  Transmission Date: 20081010
  Serious: Yes (Death)
  Sender: FDA-Public Use
  Company Number: US-ELI_LILLY_AND_COMPANY-US200805003406

PATIENT
  Sex: Male

DRUGS (1)
  1. CYMBALTA [Suspect]
     Dates: end: 20080501

REACTIONS (1)
  - GUN SHOT WOUND [None]
